FAERS Safety Report 7746724-X (Version None)
Quarter: 2011Q3

REPORT INFORMATION
  Report Type: 
  Country: None (occurrence: None)
  Receive Date: 20110908
  Receipt Date: 20110826
  Transmission Date: 20111222
  Serious: Yes (Other)
  Sender: FDA-Public Use
  Company Number: JPI-P-016840

PATIENT
  Age: 70 Year
  Sex: Male

DRUGS (1)
  1. XYREM [Suspect]
     Indication: CATAPLEXY
     Dosage: ORAL 9 MG (4.5 MG, 2 IN 1 D), ORAL
     Route: 048

REACTIONS (2)
  - HAEMOPTYSIS [None]
  - PULMONARY MASS [None]
